FAERS Safety Report 16836926 (Version 2)
Quarter: 2019Q4

REPORT INFORMATION
  Report Type: Spontaneous
  Country: ES (occurrence: ES)
  Receive Date: 20190923
  Receipt Date: 20191118
  Transmission Date: 20200122
  Serious: Yes (Hospitalization)
  Sender: FDA-Public Use
  Company Number: ES-UCBSA-2019039944

PATIENT
  Age: 51 Year
  Sex: Male

DRUGS (1)
  1. VIMPAT [Suspect]
     Active Substance: LACOSAMIDE
     Indication: EPILEPSY
     Dosage: 100 MG DAILY
     Route: 048
     Dates: start: 20170223, end: 20170321

REACTIONS (2)
  - Delirium [Recovered/Resolved]
  - Agitation [Recovered/Resolved]

NARRATIVE: CASE EVENT DATE: 20170223
